FAERS Safety Report 8172928 (Version 7)
Quarter: 2013Q1

REPORT INFORMATION
  Report Type: Spontaneous
  Country: US (occurrence: US)
  Receive Date: 20111007
  Receipt Date: 20130121
  Transmission Date: 20140127
  Serious: Yes (Other)
  Sender: FDA-Public Use
  Company Number: PHHY2011US63471

PATIENT
  Age: 6 Year
  Sex: Male

DRUGS (11)
  1. AFINITOR [Suspect]
     Indication: TUBEROUS SCLEROSIS
     Dosage: 2.5 MG, DAILY
     Route: 048
     Dates: start: 20110706
  2. AFINITOR [Suspect]
     Indication: BRAIN NEOPLASM BENIGN
     Dosage: 2.5 MG, DAILY
     Route: 048
     Dates: start: 20110821
  3. AFINITOR [Suspect]
     Dosage: 5 MG, DAILY
     Route: 048
     Dates: end: 20111101
  4. AFINITOR [Suspect]
     Dosage: 2 DF, EVERY 3 DAYS
     Route: 048
  5. AFINITOR [Suspect]
     Dosage: 2.5 MG ALTERNATING WITH 5 MG EVERY OTHER DAY
  6. AFINITOR [Suspect]
     Dosage: 2.5 MG,  EVERY 3 DAYS
     Route: 048
  7. VIMPAT [Concomitant]
  8. TENEX [Concomitant]
  9. DILANTIN [Concomitant]
  10. FELBAMATE [Concomitant]
  11. VITAMIN B6 [Concomitant]

REACTIONS (13)
  - Depressed mood [Not Recovered/Not Resolved]
  - Head banging [Recovering/Resolving]
  - Oral mucosal blistering [Recovering/Resolving]
  - Aggression [Unknown]
  - Anger [Not Recovered/Not Resolved]
  - Hypophagia [Not Recovered/Not Resolved]
  - Irritability [Not Recovered/Not Resolved]
  - Drooling [Not Recovered/Not Resolved]
  - Abnormal behaviour [Not Recovered/Not Resolved]
  - Crying [Recovering/Resolving]
  - Pyrexia [Not Recovered/Not Resolved]
  - Oral discomfort [Not Recovered/Not Resolved]
  - Feeling abnormal [Not Recovered/Not Resolved]
